FAERS Safety Report 4449093-6 (Version None)
Quarter: 2004Q3

REPORT INFORMATION
  Report Type: 
  Country: None (occurrence: None)
  Receive Date: 20040910
  Receipt Date: 20040825
  Transmission Date: 20050211
  Serious: No
  Sender: FDA-Public Use
  Company Number: 2004GB02059

PATIENT
  Age: 69 Year
  Sex: Female
  Weight: 59.2 kg

DRUGS (5)
  1. GEFITINIB [Suspect]
     Indication: NON-SMALL CELL LUNG CANCER
     Dosage: 250 MG QD PO
     Route: 048
     Dates: start: 20040715, end: 20040824
  2. PARACETAMOL [Concomitant]
  3. PAROXETINE HCL [Concomitant]
  4. ORAMORPH SR [Concomitant]
  5. LORMETAZEPAM [Concomitant]

REACTIONS (4)
  - CONTUSION [None]
  - PAIN IN EXTREMITY [None]
  - PERIPHERAL ISCHAEMIA [None]
  - SKIN DISCOLOURATION [None]
